FAERS Safety Report 14572998 (Version 1)
Quarter: 2018Q1

REPORT INFORMATION
  Report Type: Spontaneous
  Country: US (occurrence: US)
  Receive Date: 20180223
  Receipt Date: 20180223
  Transmission Date: 20180509
  Serious: Yes (Life-Threatening)
  Sender: FDA-Public Use
  Company Number: None

PATIENT
  Age: 70 Year
  Sex: Female
  Weight: 60.3 kg

DRUGS (4)
  1. VISINE A [Suspect]
     Active Substance: NAPHAZOLINE HYDROCHLORIDE\PHENIRAMINE MALEATE
     Indication: HYPERSENSITIVITY
     Dosage: ?          QUANTITY:1 DROP(S);?
     Route: 047
     Dates: start: 20180218, end: 20180218
  2. METRONIDAZOLE TOPICAL CREAM 0.75% G+W LABORATORIES, INC. NEW JERSEY [Concomitant]
     Active Substance: METRONIDAZOLE
  3. VITAMIN D [Concomitant]
     Active Substance: CHOLECALCIFEROL
  4. PROBIOTIC [Concomitant]
     Active Substance: PROBIOTICS NOS

REACTIONS (7)
  - Blood pressure increased [None]
  - Eye pruritus [None]
  - Palpitations [None]
  - Swelling face [None]
  - Eye swelling [None]
  - Eye discharge [None]
  - Ocular hyperaemia [None]

NARRATIVE: CASE EVENT DATE: 20180218
